FAERS Safety Report 8556363 (Version 4)
Quarter: 2013Q1

REPORT INFORMATION
  Report Type: Report from Study
  Country: AR (occurrence: AR)
  Receive Date: 20120510
  Receipt Date: 20130107
  Transmission Date: 20140127
  Serious: Yes (Death, Hospitalization)
  Sender: FDA-Public Use
  Company Number: AR-UCBSA-056754

PATIENT
  Age: 61 Year
  Sex: Male
  Weight: 83 kg

DRUGS (4)
  1. CERTOLIZUMAB PEGOL [Suspect]
     Dosage: NO OF DOSES-39
     Route: 058
     Dates: start: 20110419, end: 20120417
  2. MELOXICAM [Concomitant]
     Indication: OSTEOARTHRITIS
     Dates: start: 201004
  3. GLUCOSAMINE [Concomitant]
     Indication: OSTEOARTHRITIS
     Dates: start: 201004
  4. CARBAMAZEPINE [Concomitant]
     Indication: TRIGEMINAL NEURALGIA
     Dates: start: 2000

REACTIONS (2)
  - Sepsis [Fatal]
  - Pneumonia [Unknown]
